FAERS Safety Report 6016886-3 (Version None)
Quarter: 2008Q4

REPORT INFORMATION
  Report Type: 
  Country: None (occurrence: None)
  Receive Date: 20081219
  Receipt Date: 20081209
  Transmission Date: 20090506
  Serious: Yes (Death)
  Sender: FDA-Public Use
  Company Number: 1-17078134

PATIENT
  Age: 40 Year
  Sex: Female

DRUGS (1)
  1. KINLYTIC [Suspect]
     Indication: CEREBRAL VENOUS THROMBOSIS
     Dosage: BOLUS THEN 100,000 IU/H, INTRAVENOUS
     Route: 042

REACTIONS (3)
  - BRAIN SCAN ABNORMAL [None]
  - GRAND MAL CONVULSION [None]
  - PLATELET COUNT DECREASED [None]
